FAERS Safety Report 6772516-4 (Version None)
Quarter: 2010Q2

REPORT INFORMATION
  Report Type: 
  Country: None (occurrence: None)
  Receive Date: 20100616
  Receipt Date: 20090916
  Transmission Date: 20101027
  Serious: No
  Sender: FDA-Public Use
  Company Number: US-ASTRAZENECA-2009SE13577

PATIENT
  Age: 82 Year
  Sex: Female

DRUGS (1)
  1. PULMICORT RESPULES [Suspect]
     Indication: PULMONARY FIBROSIS
     Route: 055
     Dates: start: 20080701

REACTIONS (2)
  - DYSGEUSIA [None]
  - SENSITIVITY OF TEETH [None]
